FAERS Safety Report 8603999-2 (Version None)
Quarter: 2012Q3

REPORT INFORMATION
  Report Type: 
  Country: None (occurrence: None)
  Receive Date: 20120820
  Receipt Date: 20120808
  Transmission Date: 20120928
  Serious: No
  Sender: FDA-Public Use
  Company Number: US-BIOGENIDEC-2012BI025452

PATIENT
  Age: 36 Year
  Sex: Male
  Weight: 63 kg

DRUGS (14)
  1. AVONEX [Concomitant]
     Route: 030
     Dates: start: 20001104
  2. SILDENAFIL [Concomitant]
     Route: 048
  3. ALPRAZOLAM [Concomitant]
     Route: 048
  4. HYDROCODONE BITARTRATE + ACETAMINOPHEN [Concomitant]
     Route: 048
  5. SERTRALINE HYDROCHLORIDE [Concomitant]
     Route: 048
  6. TAMSULOSIN HCL [Concomitant]
     Route: 048
  7. OMEPRAZOLE [Concomitant]
     Route: 048
  8. AMLODIPINE [Concomitant]
     Route: 048
  9. TYSABRI [Suspect]
     Indication: MULTIPLE SCLEROSIS
     Route: 042
     Dates: start: 20090406, end: 20120504
  10. OXCARBAZEPINE [Concomitant]
     Route: 048
  11. ACYCLOVIR [Concomitant]
     Route: 048
  12. AVONEX [Concomitant]
     Indication: MULTIPLE SCLEROSIS
     Route: 030
  13. BACLOFEN [Concomitant]
     Route: 048
  14. ATENOLOL AND CHLORTHALIDONE [Concomitant]
     Route: 048

REACTIONS (2)
  - BIPOLAR DISORDER [None]
  - DEPRESSION [None]
